FAERS Safety Report 16137758 (Version 2)
Quarter: 2019Q2

REPORT INFORMATION
  Report Type: Spontaneous
  Country: DZ (occurrence: DZ)
  Receive Date: 20190401
  Receipt Date: 20190509
  Transmission Date: 20190711
  Serious: Yes (Other)
  Sender: FDA-Public Use
  Company Number: DZ-BIOGEN-2019BI00717106

PATIENT
  Age: 43 Year
  Sex: Female

DRUGS (1)
  1. TYSABRI [Suspect]
     Active Substance: NATALIZUMAB
     Indication: RELAPSING-REMITTING MULTIPLE SCLEROSIS
     Route: 042
     Dates: start: 20180906

REACTIONS (1)
  - Hypertension [Not Recovered/Not Resolved]

NARRATIVE: CASE EVENT DATE: 201811
